APPROVED DRUG PRODUCT: ICOSAPENT ETHYL
Active Ingredient: ICOSAPENT ETHYL
Strength: 500MG
Dosage Form/Route: CAPSULE;ORAL
Application: A209525 | Product #001 | TE Code: AB
Applicant: TEVA PHARMACEUTICALS USA
Approved: Sep 11, 2020 | RLD: No | RS: No | Type: RX